FAERS Safety Report 16284908 (Version 2)
Quarter: 2019Q2

REPORT INFORMATION
  Report Type: Report from Study
  Country: SI (occurrence: SI)
  Receive Date: 20190508
  Receipt Date: 20190515
  Transmission Date: 20190711
  Serious: Yes (Death, Hospitalization)
  Sender: FDA-Public Use
  Company Number: SI-PFIZER INC-2019195936

PATIENT
  Age: 75 Year
  Sex: Male
  Weight: 88 kg

DRUGS (3)
  1. XULTOPHY 100/3.6 [Suspect]
     Active Substance: INSULIN DEGLUDEC\LIRAGLUTIDE
     Indication: TYPE 2 DIABETES MELLITUS
     Dosage: 25 IU, QD (25 DOSE STEPS IN THE EVENING)
     Route: 058
     Dates: start: 20180830, end: 20190225
  2. AMIODARONE HCL [Suspect]
     Active Substance: AMIODARONE HYDROCHLORIDE
     Dosage: UNK
     Route: 065
  3. NOVORAPID [Concomitant]
     Active Substance: INSULIN ASPART
     Dosage: 100 U/ML
     Route: 065
     Dates: end: 201901

REACTIONS (4)
  - Interstitial lung disease [Recovering/Resolving]
  - Dyspnoea [Fatal]
  - Cardio-respiratory arrest [Fatal]
  - Influenza [Recovered/Resolved]

NARRATIVE: CASE EVENT DATE: 20181228
